FAERS Safety Report 20021939 (Version 1)
Quarter: 2021Q4

REPORT INFORMATION
  Report Type: Spontaneous
  Country: JP (occurrence: JP)
  Receive Date: 20211102
  Receipt Date: 20211102
  Transmission Date: 20220303
  Serious: Yes (Death, Life-Threatening, Hospitalization, Other)
  Sender: FDA-Public Use
  Company Number: None

PATIENT
  Age: 9 Decade
  Sex: Male
  Weight: 44.9 kg

DRUGS (1)
  1. PREDNISOLONE [Suspect]
     Active Substance: PREDNISOLONE
     Indication: Psoriatic arthropathy
     Dosage: 15-20 MILLIGRAM PER DAY 6 YEARS
     Route: 065

REACTIONS (10)
  - Staphylococcal sepsis [Fatal]
  - Condition aggravated [Fatal]
  - Mitral valve incompetence [Fatal]
  - Septic shock [Fatal]
  - Nosocomial infection [Fatal]
  - Pneumonia [Unknown]
  - Cerebral infarction [Fatal]
  - Staphylococcal bacteraemia [Fatal]
  - Endocarditis [Fatal]
  - Cerebrovascular accident [Fatal]
